FAERS Safety Report 20187171 (Version 3)
Quarter: 2022Q1

REPORT INFORMATION
  Report Type: Spontaneous
  Country: AT (occurrence: AT)
  Receive Date: 20211215
  Receipt Date: 20220302
  Transmission Date: 20220424
  Serious: Yes (Life-Threatening, Hospitalization, Other)
  Sender: FDA-Public Use
  Company Number: None

PATIENT
  Age: 71 Year
  Sex: Female

DRUGS (15)
  1. IMATINIB [Suspect]
     Active Substance: IMATINIB
     Indication: Chronic myeloid leukaemia
     Dosage: UNK
     Route: 065
  2. IMATINIB [Suspect]
     Active Substance: IMATINIB
     Indication: Chloroma
  3. TASIGNA [Suspect]
     Active Substance: NILOTINIB
     Indication: Chronic myeloid leukaemia
     Dosage: UNK
     Route: 065
  4. DASATINIB [Suspect]
     Active Substance: DASATINIB
     Indication: Chronic myeloid leukaemia
     Dosage: UNK
     Route: 065
  5. DASATINIB [Suspect]
     Active Substance: DASATINIB
     Indication: Chloroma
  6. BOSUTINIB [Suspect]
     Active Substance: BOSUTINIB
     Indication: Chronic myeloid leukaemia
     Dosage: UNK
     Route: 065
  7. BOSUTINIB [Suspect]
     Active Substance: BOSUTINIB
     Indication: Chloroma
  8. ICLUSIG [Suspect]
     Active Substance: PONATINIB
     Indication: Philadelphia positive chronic myeloid leukaemia
     Dosage: UNK
     Route: 048
     Dates: start: 202004
  9. ICLUSIG [Suspect]
     Active Substance: PONATINIB
     Indication: Chloroma
     Dosage: UNK
     Route: 048
  10. ICLUSIG [Suspect]
     Active Substance: PONATINIB
     Dosage: UNK
     Route: 048
     Dates: start: 2020
  11. ICLUSIG [Suspect]
     Active Substance: PONATINIB
     Dates: start: 20190709, end: 202004
  12. IBRANCE [Suspect]
     Active Substance: PALBOCICLIB
     Indication: Philadelphia positive chronic myeloid leukaemia
     Route: 065
  13. IBRANCE [Suspect]
     Active Substance: PALBOCICLIB
     Indication: Tyrosine kinase mutation
     Route: 065
     Dates: start: 20200228
  14. IBRANCE [Suspect]
     Active Substance: PALBOCICLIB
     Indication: Chloroma
     Route: 065
     Dates: start: 2020
  15. HYDROXYUREA [Concomitant]
     Active Substance: HYDROXYUREA
     Indication: Product used for unknown indication
     Route: 065
     Dates: start: 2019, end: 2019

REACTIONS (14)
  - Chronic myeloid leukaemia [Unknown]
  - Disease progression [Unknown]
  - Drug ineffective [Unknown]
  - Blast crisis in myelogenous leukaemia [Unknown]
  - Cancer pain [Unknown]
  - Pancytopenia [Recovered/Resolved]
  - Leukopenia [Recovered/Resolved]
  - Neutropenia [Recovered/Resolved]
  - Abdominal pain upper [Unknown]
  - Haematotoxicity [Recovered/Resolved]
  - Tyrosine kinase mutation [Unknown]
  - Asthenia [Unknown]
  - Malaise [Unknown]
  - Off label use [Unknown]

NARRATIVE: CASE EVENT DATE: 20190601
